FAERS Safety Report 13039553 (Version 4)
Quarter: 2019Q2

REPORT INFORMATION
  Report Type: Spontaneous
  Country: US (occurrence: US)
  Receive Date: 20161219
  Receipt Date: 20190513
  Transmission Date: 20190711
  Serious: Yes (Hospitalization)
  Sender: FDA-Public Use
  Company Number: US-ACTELION-A-NJ2016-146253

PATIENT
  Sex: Female
  Weight: 43.08 kg

DRUGS (4)
  1. AMLODIPINE [Concomitant]
     Active Substance: AMLODIPINE BESYLATE
  2. UPTRAVI [Suspect]
     Active Substance: SELEXIPAG
     Indication: PULMONARY HYPERTENSION
     Dosage: 1400 MCG, BID
     Route: 048
     Dates: start: 20160912
  3. ADEMPAS [Concomitant]
     Active Substance: RIOCIGUAT
  4. UPTRAVI [Suspect]
     Active Substance: SELEXIPAG
     Dosage: 1600 MCG, BID
     Route: 048

REACTIONS (9)
  - Diarrhoea [Unknown]
  - Road traffic accident [Unknown]
  - Influenza [Unknown]
  - Pyrexia [Unknown]
  - Pain in jaw [Unknown]
  - Dyspnoea [Unknown]
  - Chills [Unknown]
  - Malaise [Unknown]
  - Chronic obstructive pulmonary disease [Unknown]
